FAERS Safety Report 23801619 (Version 3)
Quarter: 2024Q2

REPORT INFORMATION
  Report Type: Report from Study
  Country: PT (occurrence: PT)
  Receive Date: 20240430
  Receipt Date: 20240520
  Transmission Date: 20240716
  Serious: Yes (Other)
  Sender: FDA-Public Use
  Company Number: PT-ABBVIE-5738451

PATIENT
  Age: 54 Year
  Sex: Male

DRUGS (13)
  1. CARBIDOPA\LEVODOPA [Suspect]
     Active Substance: CARBIDOPA\LEVODOPA
     Indication: Multiple system atrophy
     Dosage: 20 MG + 5 MG?MO:7CC;MA:DAY4.9CC/H;NIGHT3CC/H;EX:2ML?START DATE 2024
     Route: 050
     Dates: end: 20240427
  2. CARBIDOPA\LEVODOPA [Suspect]
     Active Substance: CARBIDOPA\LEVODOPA
     Dosage: 20 MG + 5 MG?MO:4CC;MAI:4.5CC/H;EX:1CC;MAI:2ML;EX:1ML
     Route: 050
     Dates: start: 20220422
  3. CARBIDOPA\LEVODOPA [Suspect]
     Active Substance: CARBIDOPA\LEVODOPA
     Dosage: 20 MG + 5 MG?MO:7CC;MA:DAY4.9CC/H;NIGH2.8CC/H;EX:2ML?LAST ADMIN DATE 2024
     Route: 050
     Dates: start: 20240427
  4. CARBIDOPA\LEVODOPA [Suspect]
     Active Substance: CARBIDOPA\LEVODOPA
     Dosage: DRUG START DATE 2024
     Route: 050
  5. DOMPERIDONE [Concomitant]
     Active Substance: DOMPERIDONE
     Indication: Product used for unknown indication
     Dosage: TIME INTERVAL: 0.33333333 DAYS: FORM STRENGTH: 10 MILLIGRAM?START DATE TEXT: BEFORE DUODOPA
  6. FLUDROCORTISONE [Concomitant]
     Active Substance: FLUDROCORTISONE
     Indication: Product used for unknown indication
     Dosage: FORM STRENGTH: 0.1 MILLIGRAM?FREQUENCY TEXT: AT 8AM AND 7PM?START DATE TEXT: BEFORE DUODOPA
  7. CLONAZEPAM [Concomitant]
     Active Substance: CLONAZEPAM
     Indication: Product used for unknown indication
     Dosage: 1 TABLET?FORM STRENGTH: 2.5 MILLIGRAM?FREQUENCY TEXT: AT 10PM?START DATE TEXT: BEFORE DUODOPA
  8. CLOZAPINE [Concomitant]
     Active Substance: CLOZAPINE
     Indication: Product used for unknown indication
     Dosage: 2 TABLET?FREQUENCY TEXT: AT 10PM?FORM STRENGTH: 25 MILLIGRAM?START DATE TEXT: BEFORE DUODOPA
  9. MEMANTINE [Concomitant]
     Active Substance: MEMANTINE
     Indication: Product used for unknown indication
     Dosage: 2 TABLET?FREQUENCY TEXT: AT 9AM?START DATE TEXT: BEFORE DUODOPA?FORM STRENGTH: 10 MILLIGRAM
  10. ESCITALOPRAM [Concomitant]
     Active Substance: ESCITALOPRAM OXALATE
     Indication: Product used for unknown indication
     Dosage: 2 TABLET?FORM STRENGTH: 10 MILLIGRAM?START DATE TEXT: BEFORE DUODOPA?FREQUENCY TEXT: AT 9AM
  11. BENSERAZIDE HYDROCHLORIDE\LEVODOPA [Concomitant]
     Active Substance: BENSERAZIDE HYDROCHLORIDE\LEVODOPA
     Indication: Product used for unknown indication
     Dosage: 1.5 TABLET?FREQUENCY TEXT: AT 8,10,12,14,16,18,20,22H?PRODUCT (MADOPAR 200/50 (LEVODOPA + BENSERA...
  12. LACTULOSE [Concomitant]
     Active Substance: LACTULOSE
     Indication: Product used for unknown indication
     Dosage: FORM STRENGTH: 15  MILLILITRE(S)?FREQUENCY TEXT: AT 9AM AND 7PM?START DATE TEXT: BEFORE DUODOPA
  13. MIDODRINE [Concomitant]
     Active Substance: MIDODRINE
     Indication: Product used for unknown indication
     Dosage: FORM STRENGTH: 2.5 MILLIGRAM?FREQUENCY TEXT: 3 TABLETS AT 8AM AND 7PM?START DATE TEXT: BEFORE DUO...

REACTIONS (2)
  - Urinary tract infection [Recovered/Resolved]
  - On and off phenomenon [Recovered/Resolved]

NARRATIVE: CASE EVENT DATE: 20240401
